FAERS Safety Report 12257640 (Version 2)
Quarter: 2016Q3

REPORT INFORMATION
  Report Type: Report from Study
  Country: GB (occurrence: GB)
  Receive Date: 20160412
  Receipt Date: 20160831
  Transmission Date: 20161109
  Serious: Yes (Hospitalization)
  Sender: FDA-Public Use
  Company Number: GB-ABBVIE-16K-167-1598113-00

PATIENT
  Age: 41 Year
  Sex: Female
  Weight: 70.5 kg

DRUGS (1)
  1. HUMIRA [Suspect]
     Active Substance: ADALIMUMAB
     Indication: PSORIASIS
     Route: 058
     Dates: start: 20090316, end: 20140915

REACTIONS (3)
  - Abdominal pain [Unknown]
  - Abdominal pain lower [Recovered/Resolved]
  - Abdominal adhesions [Unknown]

NARRATIVE: CASE EVENT DATE: 20120110
